FAERS Safety Report 4854266-4 (Version None)
Quarter: 2005Q4

REPORT INFORMATION
  Report Type: 
  Country: None (occurrence: None)
  Receive Date: 20051213
  Receipt Date: 20051213
  Transmission Date: 20060501
  Serious: Yes (Hospitalization, Other)
  Sender: FDA-Public Use
  Company Number: None

PATIENT
  Sex: Male
  Weight: 63.6 kg

DRUGS (3)
  1. DOCETAXEL [Suspect]
     Indication: PROSTATE CANCER
     Dosage: SEE IMAGE
     Route: 042
     Dates: start: 20051024, end: 20051024
  2. DOCETAXEL [Suspect]
     Indication: PROSTATE CANCER
     Dosage: SEE IMAGE
     Route: 042
     Dates: start: 20051114
  3. PREDNISONE 50MG TAB [Suspect]
     Dosage: SEE IMAGE
     Route: 048

REACTIONS (1)
  - HYPERGLYCAEMIA [None]
